FAERS Safety Report 24683528 (Version 2)
Quarter: 2025Q1

REPORT INFORMATION
  Report Type: Report from Study
  Country: BR (occurrence: BR)
  Receive Date: 20241201
  Receipt Date: 20250304
  Transmission Date: 20250409
  Serious: No
  Sender: TAKEDA
  Company Number: BR-TAKEDA-2023TUS008142

PATIENT
  Sex: Female

DRUGS (5)
  1. VEDOLIZUMAB [Suspect]
     Active Substance: VEDOLIZUMAB
     Indication: Colitis ulcerative
  2. MESALAMINE [Suspect]
     Active Substance: MESALAMINE
     Indication: Product used for unknown indication
  3. COVID-19 VACCINE NOS [Suspect]
     Active Substance: COVID-19 VACCINE
     Indication: Product used for unknown indication
  4. DIPYRONE [Concomitant]
     Active Substance: DIPYRONE
     Indication: Headache
  5. LOSARTAN [Concomitant]
     Active Substance: LOSARTAN
     Indication: Hypertension
     Dosage: UNK UNK, QD

REACTIONS (5)
  - Gamma-glutamyltransferase increased [Unknown]
  - Biliary tract disorder [Unknown]
  - Product availability issue [Unknown]
  - Inappropriate schedule of product administration [Unknown]
  - Influenza [Unknown]
